FAERS Safety Report 17464226 (Version 6)
Quarter: 2020Q2

REPORT INFORMATION
  Report Type: Report from Study
  Country: PL (occurrence: PL)
  Receive Date: 20200226
  Receipt Date: 20200403
  Transmission Date: 20200713
  Serious: Yes (Life-Threatening, Hospitalization)
  Sender: FDA-Public Use
  Company Number: PL-EISAI MEDICAL RESEARCH-EC-2020-068301

PATIENT
  Age: 64 Year
  Sex: Female
  Weight: 97 kg

DRUGS (11)
  1. PEMBROLIZUMAB. [Suspect]
     Active Substance: PEMBROLIZUMAB
     Indication: ENDOMETRIAL CANCER
     Route: 041
     Dates: start: 20191023, end: 20191126
  2. TORECAN [Concomitant]
     Active Substance: THIETHYLPERAZINE MALATE
     Dates: start: 20191125, end: 20200103
  3. CAPTOPRIL. [Concomitant]
     Active Substance: CAPTOPRIL
     Dates: start: 20191002, end: 20200103
  4. FENTANYL. [Concomitant]
     Active Substance: FENTANYL
     Dates: start: 20191001
  5. ALUGASTRIN [Concomitant]
     Dates: start: 20191127, end: 20200115
  6. PEMBROLIZUMAB. [Suspect]
     Active Substance: PEMBROLIZUMAB
     Route: 041
     Dates: start: 20191218, end: 20191218
  7. RIVAROXABAN [Concomitant]
     Active Substance: RIVAROXABAN
     Dates: start: 20191001, end: 20200104
  8. VERAPAMIL [Concomitant]
     Active Substance: VERAPAMIL HYDROCHLORIDE
     Dates: start: 20191001
  9. POLPRAZOL [Concomitant]
     Active Substance: OMEPRAZOLE
     Dates: start: 20191011
  10. LENVATINIB [Suspect]
     Active Substance: LENVATINIB
     Indication: ENDOMETRIAL CANCER
     Route: 048
     Dates: start: 20191023, end: 20200103
  11. TORECAN [Concomitant]
     Active Substance: THIETHYLPERAZINE MALATE
     Route: 041
     Dates: start: 20191127, end: 20200104

REACTIONS (1)
  - Dehydration [Recovered/Resolved]

NARRATIVE: CASE EVENT DATE: 20200103
